FAERS Safety Report 25587324 (Version 1)
Quarter: 2025Q3

REPORT INFORMATION
  Report Type: Spontaneous
  Country: EU (occurrence: EU)
  Receive Date: 20250721
  Receipt Date: 20250721
  Transmission Date: 20251021
  Serious: Yes (Hospitalization)
  Sender: MYLAN
  Company Number: None

PATIENT
  Age: 24 Year
  Sex: Male

DRUGS (1)
  1. TRAMADOL [Suspect]
     Active Substance: TRAMADOL
     Indication: Product used for unknown indication
     Dates: start: 20250416

REACTIONS (9)
  - Chest discomfort [Recovering/Resolving]
  - Sinus arrhythmia [Recovering/Resolving]
  - Agitation [Recovering/Resolving]
  - Bundle branch block [Recovering/Resolving]
  - Tachypnoea [Recovering/Resolving]
  - Chest pain [Recovering/Resolving]
  - Discomfort [Recovering/Resolving]
  - Overdose [Recovering/Resolving]
  - Toxicity to various agents [Recovering/Resolving]

NARRATIVE: CASE EVENT DATE: 20250416
